FAERS Safety Report 8584658-1 (Version None)
Quarter: 2012Q3

REPORT INFORMATION
  Report Type: 
  Country: None (occurrence: None)
  Receive Date: 20120730
  Receipt Date: 20120720
  Transmission Date: 20120928
  Serious: Yes (Other)
  Sender: FDA-Public Use
  Company Number: DSA_58671_2012

PATIENT

DRUGS (6)
  1. LEVOLEUCOVORIN CALCIUM [Suspect]
     Indication: COLORECTAL CANCER
     Dosage: 200 MG/M2 INTRAVENOUS
     Route: 042
  2. FLUOROURACIL [Suspect]
     Indication: COLORECTAL CANCER
     Dosage: 400 MG/M2 INTRAVENOU BOLUS, 2400 MG/M2 INTRAVENOUS
     Route: 040
  3. GRANISETRON [Concomitant]
  4. ONDANSETRON HYDROCHLORIDE [Concomitant]
  5. IRINOTECAN HCL [Suspect]
     Indication: COLORECTAL CANCER
     Dosage: 180 MG/M2 INTRAVENOUS
     Route: 042
  6. DEXAMETHASONE [Concomitant]

REACTIONS (1)
  - DIARRHOEA [None]
